FAERS Safety Report 6382593-0 (Version None)
Quarter: 2009Q3

REPORT INFORMATION
  Report Type: 
  Country: None (occurrence: None)
  Receive Date: 20090930
  Receipt Date: 20090925
  Transmission Date: 20100115
  Serious: Yes (Other)
  Sender: FDA-Public Use
  Company Number: B0595185A

PATIENT
  Age: 17 Day

DRUGS (1)
  1. ACYCLOVIR [Suspect]
     Route: 042

REACTIONS (3)
  - EXTRAVASATION [None]
  - PHLEBITIS [None]
  - SWELLING [None]
